FAERS Safety Report 11781587 (Version 5)
Quarter: 2016Q4

REPORT INFORMATION
  Report Type: Report from Study
  Country: DE (occurrence: DE)
  Receive Date: 20151126
  Receipt Date: 20161207
  Transmission Date: 20170206
  Serious: Yes (Hospitalization, Other)
  Sender: FDA-Public Use
  Company Number: DE-JNJFOC-20151009081

PATIENT
  Sex: Male
  Weight: 71 kg

DRUGS (2)
  1. XARELTO [Suspect]
     Active Substance: RIVAROXABAN
     Indication: ATRIAL FIBRILLATION
     Route: 048
     Dates: start: 20130201, end: 20140529
  2. HEPARIN [Concomitant]
     Active Substance: HEPARIN SODIUM
     Route: 065
     Dates: start: 20140603

REACTIONS (12)
  - Nervous system disorder [Recovered/Resolved]
  - Haemorrhage [Unknown]
  - Haematoma [Recovered/Resolved]
  - Anaemia [Unknown]
  - Confusional state [Unknown]
  - Acute kidney injury [Recovered/Resolved]
  - Hallucination [Unknown]
  - Delirium [Unknown]
  - Nervous system disorder [Recovered/Resolved]
  - Septic encephalopathy [Unknown]
  - Chronic kidney disease [Recovered/Resolved]
  - Gastrointestinal haemorrhage [Recovered/Resolved]

NARRATIVE: CASE EVENT DATE: 20140530
